FAERS Safety Report 12350721 (Version 2)
Quarter: 2016Q3

REPORT INFORMATION
  Report Type: Report from Study
  Country: US (occurrence: US)
  Receive Date: 20160510
  Receipt Date: 20160812
  Transmission Date: 20161109
  Serious: Yes (Other)
  Sender: FDA-Public Use
  Company Number: US-TEVA-657964USA

PATIENT
  Age: 73 Year
  Sex: Female

DRUGS (5)
  1. CLOZAPINE. [Suspect]
     Active Substance: CLOZAPINE
     Route: 048
     Dates: end: 20160503
  2. BENZATROPINE [Concomitant]
     Active Substance: BENZTROPINE
  3. CLOZAPINE. [Suspect]
     Active Substance: CLOZAPINE
     Route: 048
     Dates: start: 20160504
  4. TOPIRAMATE. [Concomitant]
     Active Substance: TOPIRAMATE
  5. HALDOL [Concomitant]
     Active Substance: HALOPERIDOL

REACTIONS (1)
  - Granulocytopenia [Recovered/Resolved]

NARRATIVE: CASE EVENT DATE: 20160503
